FAERS Safety Report 24761561 (Version 1)
Quarter: 2024Q4

REPORT INFORMATION
  Report Type: Spontaneous
  Country: US (occurrence: US)
  Receive Date: 20241220
  Receipt Date: 20241220
  Transmission Date: 20250115
  Serious: No
  Sender: EDENBRIDGE PHARMACEUTICALS
  Company Number: EDEN2400226

PATIENT
  Sex: Female

DRUGS (2)
  1. IVERMECTIN [Suspect]
     Active Substance: IVERMECTIN
     Indication: COVID-19
     Dosage: 4 DOSAGE FORM, SINGLE
     Route: 048
     Dates: start: 202408, end: 202408
  2. IVERMECTIN [Suspect]
     Active Substance: IVERMECTIN
     Dosage: 4 DOSAGE FORM, SINGLE
     Route: 048
     Dates: start: 202408, end: 202408

REACTIONS (2)
  - Off label use [Unknown]
  - Expired product administered [Unknown]

NARRATIVE: CASE EVENT DATE: 20240801
